FAERS Safety Report 21742952 (Version 1)
Quarter: 2022Q4

REPORT INFORMATION
  Report Type: Report from Study
  Country: PR (occurrence: PR)
  Receive Date: 20221217
  Receipt Date: 20221217
  Transmission Date: 20230113
  Serious: No
  Sender: FDA-Public Use
  Company Number: PR-ABBVIE-4240489

PATIENT
  Sex: Male
  Weight: 75.749 kg

DRUGS (2)
  1. VENCLEXTA [Suspect]
     Active Substance: VENETOCLAX
     Indication: Acute myeloid leukaemia
     Dosage: EVENT ONSET AND LAB START DATE 2022
     Route: 048
     Dates: start: 20220929, end: 202211
  2. VENCLEXTA [Suspect]
     Active Substance: VENETOCLAX
     Indication: Acute myeloid leukaemia
     Dosage: REGIMEN START DATE 2022
     Route: 048

REACTIONS (1)
  - Platelet count increased [Unknown]
